FAERS Safety Report 8386206-8 (Version None)
Quarter: 2012Q2

REPORT INFORMATION
  Report Type: 
  Country: None (occurrence: None)
  Receive Date: 20120525
  Receipt Date: 20120521
  Transmission Date: 20120825
  Serious: Yes (Life-Threatening, Hospitalization, Congenital Anomaly, Other)
  Sender: FDA-Public Use
  Company Number: US-PFIZER INC-2011293436

PATIENT
  Sex: Female

DRUGS (20)
  1. AMBIEN [Concomitant]
     Indication: INSOMNIA
     Dosage: 10 MG, UNK
     Route: 064
     Dates: start: 20070314
  2. STADOL [Concomitant]
     Dosage: UNK
     Route: 064
     Dates: start: 20070313
  3. COLACE [Concomitant]
     Dosage: 100 MG, 2X/DAY
     Route: 064
  4. MULTI-VITAMINS [Concomitant]
     Dosage: 1 TABLET, DAILY
     Route: 064
  5. BUTORPHANOL [Concomitant]
     Dosage: 2 MG, UNK
     Route: 064
     Dates: start: 20070723
  6. IRON [Concomitant]
     Dosage: UNK
     Route: 064
  7. AMBIEN CR [Concomitant]
     Indication: RESTLESS LEGS SYNDROME
  8. ZOLOFT [Suspect]
     Indication: GENERALISED ANXIETY DISORDER
     Dosage: 50 MG, 1X/DAY
     Route: 064
     Dates: start: 20060613
  9. ZOLOFT [Suspect]
     Indication: RESTLESS LEGS SYNDROME
     Dosage: 80 MG, 1X/DAY
     Route: 064
     Dates: start: 20070201
  10. PROMETHAZINE [Concomitant]
     Dosage: 25 MG, UNK
     Route: 064
     Dates: start: 20070508
  11. ZOFRAN [Concomitant]
     Dosage: 8 MG, UNK
     Route: 064
     Dates: start: 20070509
  12. VISTARIL [Concomitant]
     Dosage: UNK
     Route: 064
     Dates: start: 20070313
  13. ZOLOFT [Suspect]
     Indication: POSTPARTUM DEPRESSION
     Dosage: 25 MG, 1X/DAY FOR 7 DAYS
     Route: 064
     Dates: start: 20060504
  14. ZOLOFT [Suspect]
     Indication: INSOMNIA
     Dosage: 100 MG, 1X/DAY
     Route: 064
     Dates: start: 20060101
  15. PERCOCET [Concomitant]
     Dosage: 100 MG, UNK
     Route: 064
     Dates: start: 20070820
  16. TERBUTALINE [Concomitant]
     Dosage: 0.25 MG, 3X/DAY, 0.25 MG EVERY 30MINS THRICE DAILY
     Route: 064
     Dates: start: 20070722, end: 20070723
  17. AMBIEN CR [Concomitant]
     Indication: INSOMNIA
     Dosage: 12.5 MG, UNK
     Route: 064
     Dates: start: 20070314
  18. SERAX [Concomitant]
     Indication: INSOMNIA
     Dosage: 10 TO 15 MG, AT BED TIME
     Route: 064
  19. AMBIEN [Concomitant]
     Indication: RESTLESS LEGS SYNDROME
     Dosage: 10 MG, UNK
     Route: 064
     Dates: start: 20070910
  20. TYLENOL [Concomitant]
     Indication: PYREXIA
     Dosage: UNK
     Route: 064
     Dates: start: 20070314

REACTIONS (13)
  - CONGENITAL ANOMALY [None]
  - MATERNAL EXPOSURE TIMING UNSPECIFIED [None]
  - ATRIAL SEPTAL DEFECT [None]
  - FAILURE TO THRIVE [None]
  - CARDIOMEGALY [None]
  - TRICUSPID VALVE DISEASE [None]
  - PULMONARY ARTERY ATRESIA [None]
  - PULMONARY ARTERY STENOSIS CONGENITAL [None]
  - PATENT DUCTUS ARTERIOSUS [None]
  - TRICUSPID VALVE INCOMPETENCE [None]
  - PREMATURE BABY [None]
  - GASTROOESOPHAGEAL REFLUX DISEASE [None]
  - HEART DISEASE CONGENITAL [None]
